FAERS Safety Report 9975994 (Version 1)
Quarter: 2014Q1

REPORT INFORMATION
  Report Type: Spontaneous
  Country: US (occurrence: US)
  Receive Date: 20140306
  Receipt Date: 20140306
  Transmission Date: 20141002
  Serious: No
  Sender: FDA-Public Use
  Company Number: US-PFIZER INC-2014062892

PATIENT
  Age: 51 Year
  Sex: Female
  Weight: 101.58 kg

DRUGS (10)
  1. LYRICA [Suspect]
     Indication: NEUROPATHY PERIPHERAL
     Dosage: 100 MG, 3X/DAY
     Dates: start: 2012
  2. LISINOPRIL [Concomitant]
     Indication: HYPERTENSION
     Dosage: 10 MG, 2X/DAY
  3. AMLODIPINE [Concomitant]
     Indication: HYPERTENSION
     Dosage: 5 MG, 1X/DAY
  4. OMEPRAZOLE [Concomitant]
     Indication: GASTROOESOPHAGEAL REFLUX DISEASE
     Dosage: 20 MG, 1X/DAY
  5. PEPCID [Concomitant]
     Indication: DYSPEPSIA
     Dosage: 20 MG, 1X/DAY
  6. PEPCID [Concomitant]
     Indication: GASTROOESOPHAGEAL REFLUX DISEASE
  7. MOBIC [Concomitant]
     Indication: BACK PAIN
     Dosage: UNK, AS NEEDED
  8. MOBIC [Concomitant]
     Indication: PAIN IN EXTREMITY
  9. PERCOCET [Concomitant]
     Indication: BACK PAIN
     Dosage: UNK, AS NEEDED
  10. PERCOCET [Concomitant]
     Indication: PAIN IN EXTREMITY

REACTIONS (4)
  - Pain [Unknown]
  - Pain in extremity [Unknown]
  - Hypoaesthesia [Unknown]
  - Memory impairment [Unknown]
